FAERS Safety Report 7121358-9 (Version None)
Quarter: 2010Q4

REPORT INFORMATION
  Report Type: 
  Country: None (occurrence: None)
  Receive Date: 20101119
  Receipt Date: 20101119
  Transmission Date: 20110411
  Serious: Yes (Other)
  Sender: FDA-Public Use
  Company Number: None

PATIENT
  Age: 53 Year
  Sex: Female
  Weight: 102.0593 kg

DRUGS (1)
  1. OXYCONTIN [Suspect]
     Indication: PSORIATIC ARTHROPATHY
     Dosage: ONE TID PO
     Route: 048
     Dates: start: 20101015, end: 20101115

REACTIONS (5)
  - HEADACHE [None]
  - NAUSEA [None]
  - PRODUCT SUBSTITUTION ISSUE [None]
  - PRURITUS GENERALISED [None]
  - RETCHING [None]
